FAERS Safety Report 24582065 (Version 1)
Quarter: 2024Q4

REPORT INFORMATION
  Report Type: Spontaneous
  Country: US (occurrence: US)
  Receive Date: 20241105
  Receipt Date: 20241105
  Transmission Date: 20250114
  Serious: No
  Sender: LUNDBECK
  Company Number: US-LUNDBECK-DKLU4005316

PATIENT

DRUGS (1)
  1. VYEPTI [Suspect]
     Active Substance: EPTINEZUMAB-JJMR
     Indication: Migraine
     Dosage: 100 MILLIGRAM
     Route: 041
     Dates: start: 20240729

REACTIONS (6)
  - Throat clearing [Unknown]
  - Sensation of foreign body [Unknown]
  - Throat irritation [Unknown]
  - Migraine [Unknown]
  - Aura [Unknown]
  - Nausea [Unknown]
